FAERS Safety Report 21027364 (Version 2)
Quarter: 2022Q3

REPORT INFORMATION
  Report Type: Spontaneous
  Country: US (occurrence: US)
  Receive Date: 20220630
  Receipt Date: 20220714
  Transmission Date: 20221027
  Serious: No
  Sender: FDA-Public Use
  Company Number: US-BAYER-2022A091094

PATIENT
  Sex: Female

DRUGS (1)
  1. MIRALAX [Suspect]
     Active Substance: POLYETHYLENE GLYCOL 3350
     Indication: Gastrointestinal disorder
     Dosage: UNK, QD 1X DAILY
     Route: 048

REACTIONS (4)
  - Gastrointestinal disorder [Unknown]
  - Insomnia [Unknown]
  - Incorrect product administration duration [Recovering/Resolving]
  - Constipation [None]
